FAERS Safety Report 7818386-4 (Version None)
Quarter: 2011Q4

REPORT INFORMATION
  Report Type: 
  Country: None (occurrence: None)
  Receive Date: 20111017
  Receipt Date: 20111013
  Transmission Date: 20120403
  Serious: Yes (Life-Threatening, Hospitalization, Other)
  Sender: FDA-Public Use
  Company Number: NZ-ABBOTT-11P-118-0864193-02

PATIENT
  Sex: Female

DRUGS (28)
  1. OMEPRAZOLE [Concomitant]
     Indication: PROPHYLAXIS AGAINST GASTROINTESTINAL ULCER
     Dates: start: 20090901
  2. METHADONE HCL [Concomitant]
     Dosage: NOCTE
     Dates: start: 20100101
  3. RESOURCE STANDARD [Concomitant]
     Indication: NUTRITIONAL SUPPORT
     Dosage: 2 TO 3 TIMES DAILY
     Dates: start: 20070301
  4. METHADONE HCL [Concomitant]
  5. LOPERAMIDE HCL [Concomitant]
     Indication: FAECAL VOLUME INCREASED
     Dosage: 4 TO 4 HOURLY AS NEEDED
     Dates: start: 20040101
  6. LOPERAMIDE HCL [Concomitant]
     Indication: SHORT-BOWEL SYNDROME
  7. ENOXAPARIN [Concomitant]
     Indication: ANTICOAGULANT THERAPY
     Dates: start: 20110501, end: 20110501
  8. HUMIRA [Suspect]
     Indication: CROHN'S DISEASE
     Dosage: BASELINE AND WEEK 2
     Route: 058
  9. HUMIRA [Suspect]
     Route: 058
  10. CENTRUM [Concomitant]
     Indication: NUTRITIONAL SUPPORT
     Dates: start: 20091101
  11. SCOPADERM TTS [Concomitant]
     Indication: VOMITING
  12. METHADONE HCL [Concomitant]
     Indication: ABDOMINAL PAIN
     Dosage: HAS BEEN WEANE DOWN 5 MG TWICE A DAY WEEKLY
     Dates: start: 20100101
  13. ETHINYL ESTRADIOL AND LEVONORGESTREL [Concomitant]
     Indication: ORAL CONTRACEPTION
  14. CHOLECALCIFEROL [Concomitant]
     Indication: PROPHYLAXIS
  15. METHADONE HCL [Concomitant]
     Dosage: MANE
     Dates: start: 20100101
  16. HUMIRA [Concomitant]
     Indication: CROHN'S DISEASE
     Route: 058
     Dates: start: 20091009
  17. ACETAMINOPHEN [Concomitant]
     Indication: ABDOMINAL PAIN
     Dates: start: 20040901
  18. ONDANSETRON [Concomitant]
     Indication: NAUSEA
     Dosage: 1 TO 2
     Dates: start: 20091012, end: 20100615
  19. PEDIALYTE [Concomitant]
     Indication: FLUID IMBALANCE
     Dosage: 500-1000 ML OVER 24 HOURS
     Dates: start: 20091101
  20. METHADONE HCL [Concomitant]
  21. METHADONE HCL [Concomitant]
  22. CYCLIZINE [Concomitant]
     Indication: NAUSEA
     Dosage: 25-50 MG AS NEEDED
     Dates: start: 20030101
  23. SCOPADERM TTS [Concomitant]
     Indication: NAUSEA
     Dates: start: 20091012
  24. CHOLECALCIFEROL [Concomitant]
     Indication: VITAMIN D DEFICIENCY
     Dosage: MONDAY
     Dates: start: 20091101
  25. WARFARIN SODIUM [Concomitant]
     Indication: ANTICOAGULANT THERAPY
     Dosage: 4 TO 5 MG DAILY
     Dates: start: 20110501
  26. ONDANSETRON [Concomitant]
     Indication: VOMITING
     Dosage: 8 HOURLY AS NEEDED
     Dates: start: 20100615
  27. PEDIALYTE [Concomitant]
     Indication: NUTRITIONAL SUPPORT
  28. ENOXAPARIN [Concomitant]
     Dates: start: 20110502

REACTIONS (3)
  - RENAL IMPAIRMENT [None]
  - DEHYDRATION [None]
  - CALCULUS URINARY [None]
